FAERS Safety Report 5195532-5 (Version None)
Quarter: 2006Q4

REPORT INFORMATION
  Report Type: 
  Country: None (occurrence: None)
  Receive Date: 20061222
  Receipt Date: 20061222
  Transmission Date: 20070319
  Serious: Yes (Hospitalization)
  Sender: FDA-Public Use
  Company Number: None

PATIENT
  Age: 19 Year
  Sex: Female
  Weight: 78 kg

DRUGS (1)
  1. PENICILLIN [Suspect]
     Indication: PROPHYLAXIS
     Dosage: UNKNOWN   UNKNOWN  UNKNOWN
     Dates: start: 20060801

REACTIONS (9)
  - CHEST PAIN [None]
  - DYSPEPSIA [None]
  - DYSPHAGIA [None]
  - LIP SWELLING [None]
  - OEDEMA PERIPHERAL [None]
  - PRURITUS [None]
  - RASH [None]
  - THROAT TIGHTNESS [None]
  - TUBERCULOSIS SKIN TEST POSITIVE [None]
